FAERS Safety Report 8755913 (Version 1)
Quarter: 2012Q4

REPORT INFORMATION
  Report Type: 
  Country: GB (occurrence: GB)
  Receive Date: 20120828
  Receipt Date: 20120828
  Transmission Date: 20130627
  Serious: Yes (Life-Threatening)
  Sender: FDA-Public Use
  Company Number: GB-TEVA-354703ISR

PATIENT
  Age: 64 Year
  Sex: Male
  Weight: 86 kg

DRUGS (2)
  1. LOSARTAN [Suspect]
     Indication: HYPERTENSION
     Route: 048
     Dates: start: 20110912, end: 201206
  2. ALLOPURINOL [Concomitant]
     Indication: GOUT
     Route: 048
     Dates: start: 1994

REACTIONS (1)
  - Cardiac arrest [Recovered/Resolved]
